FAERS Safety Report 9572484 (Version 1)
Quarter: 2013Q3

REPORT INFORMATION
  Report Type: Spontaneous
  Country: GB (occurrence: None)
  Receive Date: 20130927
  Receipt Date: 20130927
  Transmission Date: 20140515
  Serious: Yes (Hospitalization)
  Sender: FDA-Public Use
  Company Number: AUR-APL-2013-07929

PATIENT
  Age: 77 Year
  Sex: Female

DRUGS (11)
  1. SIMVASTATIN (SIMVASTATIN) [Suspect]
     Indication: PRODUCT USED FOR UNKNOWN INDICATION
     Dosage: 40 MG (40 MG, 1 IN 1 D), ORAL
     Route: 048
     Dates: start: 2008
  2. ADCAL-D3 (LEKOVIT CA) [Concomitant]
  3. ALENDRONIC ACID (ALENDRONIC ACID) [Concomitant]
  4. CLOPIDOGREL (CLOPIDOGREL) [Concomitant]
  5. DIGOXIN (DIGOXIN) [Concomitant]
  6. FENTANYL (FENTANYL) [Concomitant]
  7. FOLIC ACID (FOLIC ACID) [Concomitant]
  8. LANSOPRAZOLE (LANSOPRAZOLE) [Concomitant]
  9. LEVOTHYROXINE (LEVOTHYROXINE) [Concomitant]
  10. PREDNISOLONE (PREDNISOLONE0 [Concomitant]
  11. RAMIPRIL (RAMIPRIL) [Concomitant]

REACTIONS (1)
  - Pulmonary fibrosis [None]
